FAERS Safety Report 5429915-2 (Version None)
Quarter: 2007Q3

REPORT INFORMATION
  Report Type: 
  Country: None (occurrence: None)
  Receive Date: 20070829
  Receipt Date: 20070818
  Transmission Date: 20080115
  Serious: Yes (Other)
  Sender: FDA-Public Use
  Company Number: US-PFIZER INC-2007054742

PATIENT
  Sex: Male
  Weight: 76.2 kg

DRUGS (6)
  1. GEODON [Suspect]
     Indication: SCHIZOPHRENIA
     Route: 048
  2. PROZAC [Suspect]
     Indication: DEPRESSION
     Route: 048
     Dates: start: 20040101, end: 20070808
  3. NAVANE [Concomitant]
  4. FLUOXETINE [Concomitant]
  5. DIPHENHYDRAMINE HCL [Concomitant]
  6. AMANTADINE HCL [Concomitant]

REACTIONS (3)
  - BLOOD CHOLESTEROL INCREASED [None]
  - RETINAL EXUDATES [None]
  - RETINAL HAEMORRHAGE [None]
